FAERS Safety Report 18475508 (Version 1)
Quarter: 2020Q4

REPORT INFORMATION
  Report Type: Spontaneous
  Country: JP (occurrence: JP)
  Receive Date: 20201106
  Receipt Date: 20201106
  Transmission Date: 20210114
  Serious: Yes (Death, Other)
  Sender: FDA-Public Use
  Company Number: JP-GILEAD-2020-0501772

PATIENT
  Age: 74 Year
  Sex: Male
  Weight: 59 kg

DRUGS (10)
  1. MAXIPIME [Concomitant]
     Active Substance: CEFEPIME HYDROCHLORIDE
     Indication: PNEUMONIA
     Dosage: 4 G, BID
     Route: 041
     Dates: start: 20200923, end: 202010
  2. REMDESIVIR. [Suspect]
     Active Substance: REMDESIVIR
     Dosage: 100 MG, QD
     Route: 041
     Dates: start: 20200926, end: 20201004
  3. LEVOFLOXACIN HEMIHYDRATE [Concomitant]
     Active Substance: LEVOFLOXACIN
     Indication: PNEUMONIA
     Dosage: 500 MG, QD
     Route: 041
     Dates: start: 20200923, end: 20200929
  4. CEFTRIAXONE SODIUM. [Concomitant]
     Active Substance: CEFTRIAXONE SODIUM
     Indication: PNEUMONIA
     Dosage: 4 G, BID
     Route: 041
     Dates: start: 20201003, end: 20201011
  5. FUTHAN [Concomitant]
     Active Substance: NAFAMOSTAT MESYLATE
     Indication: THROMBOSIS
     Dosage: 240 MG, BID
     Route: 041
     Dates: start: 20200928, end: 20201008
  6. SOLU-MEDROL [Concomitant]
     Active Substance: METHYLPREDNISOLONE SODIUM SUCCINATE
     Dosage: 80 MG, BID
     Route: 041
     Dates: start: 20200927, end: 20200928
  7. REMDESIVIR. [Suspect]
     Active Substance: REMDESIVIR
     Indication: COVID-19
     Dosage: 200 MG, QD
     Route: 041
     Dates: start: 20200925, end: 20200925
  8. MORPHINE HYDROCHLORIDE [Concomitant]
     Active Substance: MORPHINE HYDROCHLORIDE
     Indication: DYSPNOEA
     Dosage: 20 MG, QD
     Route: 041
     Dates: start: 20201003, end: 20201011
  9. SOLU-MEDROL [Concomitant]
     Active Substance: METHYLPREDNISOLONE SODIUM SUCCINATE
     Indication: PNEUMONIA
     Dosage: 1000 MG, QD
     Route: 041
     Dates: start: 20200924, end: 20200926
  10. DEXART [Concomitant]
     Active Substance: DEXAMETHASONE SODIUM PHOSPHATE
     Indication: PNEUMONIA
     Dosage: 6.6 MG, QD
     Route: 041
     Dates: start: 20200929, end: 20201011

REACTIONS (2)
  - Thrombosis [Unknown]
  - COVID-19 pneumonia [Fatal]
